FAERS Safety Report 5909431-1 (Version None)
Quarter: 2008Q4

REPORT INFORMATION
  Report Type: 
  Country: None (occurrence: None)
  Receive Date: 20081006
  Receipt Date: 20080923
  Transmission Date: 20090506
  Serious: Yes (Hospitalization, Other)
  Sender: FDA-Public Use
  Company Number: CA-ELI_LILLY_AND_COMPANY-CA200807005473

PATIENT
  Age: 85 Year
  Sex: Female

DRUGS (14)
  1. FORTEO [Suspect]
     Indication: OSTEOPOROSIS
     Dosage: 20 UG, DAILY (1/D)
     Route: 058
     Dates: start: 20070917, end: 20080724
  2. FORTEO [Suspect]
     Dosage: 20 UG, DAILY (1/D)
     Route: 058
     Dates: start: 20080101, end: 20080913
  3. FORTEO [Suspect]
     Dosage: 20 UG, DAILY (1/D)
     Route: 058
     Dates: start: 20080919
  4. APO-LEVOCARB [Concomitant]
  5. CALCIUM [Concomitant]
  6. SYNTHROID [Concomitant]
  7. DOCUSATE SODIUM [Concomitant]
  8. NORVASC [Concomitant]
  9. CELEBREX [Concomitant]
  10. ASPIRIN [Concomitant]
     Dosage: UNK, AS NEEDED
  11. TYLENOL                                 /SCH/ [Concomitant]
     Dosage: UNK, AS NEEDED
  12. TEVETEN [Concomitant]
  13. NIZATIDINE [Concomitant]
  14. CALTRATE + VITAMIN D [Concomitant]

REACTIONS (16)
  - ABDOMINAL PAIN [None]
  - ASTHENIA [None]
  - BODY TEMPERATURE INCREASED [None]
  - CHEST PAIN [None]
  - CHILLS [None]
  - CHOLECYSTITIS INFECTIVE [None]
  - CHOLELITHIASIS [None]
  - DYSURIA [None]
  - HYPERHIDROSIS [None]
  - HYPOTENSION [None]
  - PALLOR [None]
  - POST PROCEDURAL COMPLICATION [None]
  - SOMNOLENCE [None]
  - TREMOR [None]
  - VOMITING [None]
  - WEIGHT DECREASED [None]
